FAERS Safety Report 6173241-3 (Version None)
Quarter: 2009Q2

REPORT INFORMATION
  Report Type: 
  Country: None (occurrence: None)
  Receive Date: 20090430
  Receipt Date: 20090420
  Transmission Date: 20091009
  Serious: Yes (Hospitalization)
  Sender: FDA-Public Use
  Company Number: US-PFIZER INC-2005078796

PATIENT
  Sex: Female
  Weight: 45 kg

DRUGS (3)
  1. PROVERA [Suspect]
     Dosage: 10 MG, DAILY, EVERY DAY
     Dates: start: 19740101
  2. MEDROXYPROGESTERONE AND MEDROXYPROGESTERONE ACETATE [Suspect]
     Dosage: UNK
     Route: 065
     Dates: start: 20030101
  3. TRIAZOLAM [Concomitant]

REACTIONS (8)
  - DRUG DEPENDENCE [None]
  - DYSARTHRIA [None]
  - FEELING ABNORMAL [None]
  - HEADACHE [None]
  - INSOMNIA [None]
  - LIVER OPERATION [None]
  - MALAISE [None]
  - VISUAL IMPAIRMENT [None]
